FAERS Safety Report 8393129-7 (Version None)
Quarter: 2012Q2

REPORT INFORMATION
  Report Type: 
  Country: None (occurrence: None)
  Receive Date: 20120529
  Receipt Date: 20120425
  Transmission Date: 20120825
  Serious: No
  Sender: FDA-Public Use
  Company Number: US-ABBOTT-12P-163-0928456-00

PATIENT
  Sex: Male
  Weight: 90.8 kg

DRUGS (5)
  1. ANDROGEL [Suspect]
     Dosage: 3 PUMPS PER DAY
     Dates: start: 20111101, end: 20120201
  2. ANDROGEL [Suspect]
     Dosage: 4 PUMPS PER DAY
     Dates: start: 20120201
  3. CYMBALTA [Concomitant]
     Indication: DEPRESSION
  4. UNKNOWN MEDICATION [Concomitant]
     Indication: HYPERTENSION
  5. ANDROGEL [Suspect]
     Indication: BLOOD TESTOSTERONE DECREASED
     Dosage: 2 PUMPS PER DAY
     Dates: start: 20110701, end: 20111101

REACTIONS (3)
  - APPLICATION SITE DRYNESS [None]
  - APPLICATION SITE PRURITUS [None]
  - DRUG ADMINISTERED AT INAPPROPRIATE SITE [None]
